FAERS Safety Report 5211696-9 (Version None)
Quarter: 2007Q1

REPORT INFORMATION
  Report Type: 
  Country: None (occurrence: None)
  Receive Date: 20070118
  Receipt Date: 20070108
  Transmission Date: 20070707
  Serious: Yes (Hospitalization)
  Sender: FDA-Public Use
  Company Number: PHHO2007CL00741

PATIENT
  Age: 42 Year
  Sex: Female

DRUGS (1)
  1. ZELMAC / HTF 919A [Suspect]
     Indication: IRRITABLE BOWEL SYNDROME
     Dosage: 6 MG, QD
     Route: 048

REACTIONS (4)
  - APPENDICECTOMY [None]
  - APPENDICITIS [None]
  - HYSTERECTOMY [None]
  - TUMOUR EXCISION [None]
